FAERS Safety Report 9456258 (Version 1)
Quarter: 2013Q3

REPORT INFORMATION
  Report Type: Spontaneous
  Country: US (occurrence: None)
  Receive Date: 20130812
  Receipt Date: 20130812
  Transmission Date: 20140515
  Serious: Yes (Life-Threatening, Hospitalization, Other)
  Sender: FDA-Public Use
  Company Number: None

PATIENT
  Age: 71 Year
  Sex: Female
  Weight: 102.06 kg

DRUGS (1)
  1. EUFLEXXA [Suspect]
     Dates: start: 201304

REACTIONS (3)
  - Subcutaneous emphysema [None]
  - Pain in extremity [None]
  - Local swelling [None]
